FAERS Safety Report 21280926 (Version 1)
Quarter: 2022Q3

REPORT INFORMATION
  Report Type: Spontaneous
  Country: US (occurrence: US)
  Receive Date: 20220901
  Receipt Date: 20220901
  Transmission Date: 20221027
  Serious: No
  Sender: FDA-Public Use
  Company Number: US-PFIZER INC-PV202200054011

PATIENT
  Age: 70 Year
  Sex: Female
  Weight: 66.213 kg

DRUGS (1)
  1. AROMASIN [Suspect]
     Active Substance: EXEMESTANE
     Indication: Breast cancer metastatic
     Dosage: UNK

REACTIONS (1)
  - Neoplasm progression [Unknown]

NARRATIVE: CASE EVENT DATE: 20160101
